FAERS Safety Report 8370743-6 (Version None)
Quarter: 2012Q2

REPORT INFORMATION
  Report Type: 
  Country: None (occurrence: None)
  Receive Date: 20120518
  Receipt Date: 20120320
  Transmission Date: 20120825
  Serious: No
  Sender: FDA-Public Use
  Company Number: US-ALEXION-A201200519

PATIENT
  Sex: Male
  Weight: 97.506 kg

DRUGS (8)
  1. PENTAMIDINE ISETHIONATE [Concomitant]
     Indication: PAROXYSMAL NOCTURNAL HAEMOGLOBINURIA
     Dosage: 300 MG, SOLR, INHALED
     Dates: start: 20110302
  2. BLOOD TRANSFUSION, AUXILIARY PRODUCTS [Concomitant]
     Indication: MYELODYSPLASTIC SYNDROME
     Dosage: FREQUENT
     Route: 042
  3. TEMAZEPAM [Concomitant]
     Indication: SLEEP DISORDER
     Dosage: 30 MG, PRN, @HS
     Route: 048
     Dates: start: 20081001
  4. SOLIRIS [Suspect]
     Indication: PAROXYSMAL NOCTURNAL HAEMOGLOBINURIA
     Dosage: 1200 MG, Q2W
     Route: 042
     Dates: start: 20120321
  5. NEORAL [Concomitant]
     Dosage: 100 MG, QD
     Route: 048
     Dates: start: 20110302
  6. SOLIRIS [Suspect]
     Dosage: UNK
     Route: 042
  7. MULTI-VITAMIN [Concomitant]
     Indication: SUPPLEMENTATION THERAPY
     Dosage: 50+, QD
     Route: 048
     Dates: start: 20091001
  8. FOLIC ACID [Concomitant]
     Dosage: UNK
     Route: 048
     Dates: start: 20091001

REACTIONS (3)
  - BLOOD LACTATE DEHYDROGENASE INCREASED [None]
  - DRUG RESISTANCE [None]
  - HAEMOLYSIS [None]
